FAERS Safety Report 20700395 (Version 2)
Quarter: 2022Q4

REPORT INFORMATION
  Report Type: Spontaneous
  Country: MY (occurrence: MY)
  Receive Date: 20220412
  Receipt Date: 20221223
  Transmission Date: 20230113
  Serious: Yes (Hospitalization, Other)
  Sender: FDA-Public Use
  Company Number: MY-AMGEN-MYSSP2022060154

PATIENT

DRUGS (9)
  1. XGEVA [Suspect]
     Active Substance: DENOSUMAB
     Indication: Product used for unknown indication
     Dosage: UNK, Q6WK
     Route: 065
     Dates: start: 20190726, end: 202203
  2. LEUPROLIDE ACETATE [Concomitant]
     Active Substance: LEUPROLIDE ACETATE
     Dosage: UNK
     Dates: start: 201602
  3. FLUTAMIDE [Concomitant]
     Active Substance: FLUTAMIDE
     Dosage: 250 MILLIGRAM, BID
     Dates: start: 201808, end: 2018
  4. ZOMETA [Concomitant]
     Active Substance: ZOLEDRONIC ACID
     Dosage: UNK
     Dates: start: 20180820
  5. ABIRATERONE [Concomitant]
     Active Substance: ABIRATERONE
     Dosage: 250 MILLIGRAM, QD
     Dates: start: 20190826
  6. PREDNISOLONE [Concomitant]
     Active Substance: PREDNISOLONE
  7. DEXA [BETAMETHASONE] [Concomitant]
  8. ATENOLOL [Concomitant]
     Active Substance: ATENOLOL
  9. CASODEX [Concomitant]
     Active Substance: BICALUTAMIDE

REACTIONS (4)
  - Hypoglycaemia [Unknown]
  - Bradycardia [Unknown]
  - Arthralgia [Unknown]
  - Back pain [Unknown]

NARRATIVE: CASE EVENT DATE: 20200101
